FAERS Safety Report 7622129-7 (Version None)
Quarter: 2011Q3

REPORT INFORMATION
  Report Type: 
  Country: None (occurrence: None)
  Receive Date: 20110720
  Receipt Date: 20110418
  Transmission Date: 20111222
  Serious: Yes (Other)
  Sender: FDA-Public Use
  Company Number: US-BAYER-2011-004043

PATIENT
  Age: 54 Year
  Sex: Female

DRUGS (1)
  1. AVELOX [Suspect]
     Indication: UPPER RESPIRATORY TRACT INFECTION
     Dosage: 400 MG, ONCE
     Route: 048
     Dates: start: 20110103, end: 20110103

REACTIONS (7)
  - SWOLLEN TONGUE [None]
  - ANGIOEDEMA [None]
  - RASH GENERALISED [None]
  - HYPERSENSITIVITY [None]
  - PRURITUS [None]
  - CHEST PAIN [None]
  - DYSPNOEA [None]
